FAERS Safety Report 7163370-X (Version None)
Quarter: 2010Q4

REPORT INFORMATION
  Report Type: 
  Country: None (occurrence: None)
  Receive Date: 20101215
  Receipt Date: 20100407
  Transmission Date: 20110411
  Serious: Yes (Other)
  Sender: FDA-Public Use
  Company Number: US-PFIZER INC-2010044859

PATIENT
  Sex: Female
  Weight: 115.65 kg

DRUGS (4)
  1. NEURONTIN [Suspect]
     Indication: NEURALGIA
     Dosage: 300 MG, 3X/DAY
     Route: 048
     Dates: start: 20050901
  2. LYRICA [Suspect]
     Indication: NEURALGIA
     Dosage: 50 MG, 3X/DAY
     Route: 048
     Dates: start: 20060201
  3. AMITRIPTYLINE [Concomitant]
     Dosage: UNK
  4. NORTRIPTYLINE [Concomitant]
     Dosage: UNK

REACTIONS (3)
  - HYPERTONIC BLADDER [None]
  - NEPHROLITHIASIS [None]
  - WEIGHT INCREASED [None]
